FAERS Safety Report 17885408 (Version 1)
Quarter: 2020Q2

REPORT INFORMATION
  Report Type: Report from Study
  Country: US (occurrence: US)
  Receive Date: 20200611
  Receipt Date: 20200611
  Transmission Date: 20200714
  Serious: Yes (Hospitalization)
  Sender: FDA-Public Use
  Company Number: US-PFIZER INC-2020-07289

PATIENT
  Age: 47 Year
  Sex: Female
  Weight: 110.4 kg

DRUGS (7)
  1. BINIMETINIB [Suspect]
     Active Substance: BINIMETINIB
     Indication: ADENOCARCINOMA OF COLON
     Dosage: 30 MG, 2X/DAY
     Route: 048
     Dates: start: 20191205
  2. TYLENOL [Concomitant]
     Active Substance: ACETAMINOPHEN
     Indication: PAIN
     Dosage: 500 MG, AS NEEDED (Q6H)
     Route: 048
     Dates: start: 20190920
  3. NORCO [Concomitant]
     Active Substance: ACETAMINOPHEN\HYDROCODONE BITARTRATE
     Dosage: 325 MG (Q4H)
     Route: 048
     Dates: start: 20191205
  4. NORCO [Concomitant]
     Active Substance: ACETAMINOPHEN\HYDROCODONE BITARTRATE
     Indication: PAIN
     Dosage: UNK, 4X/DAY
     Route: 048
     Dates: start: 20191105, end: 20191204
  5. IMODIUM [Concomitant]
     Active Substance: LOPERAMIDE HYDROCHLORIDE
     Indication: DIARRHOEA
     Dosage: 100 MG, AS NEEDED (Q4H)
     Route: 048
     Dates: start: 20190110
  6. PALBOCICLIB [Suspect]
     Active Substance: PALBOCICLIB
     Indication: ADENOCARCINOMA OF COLON
     Dosage: 100 MG, 1X/DAY
     Route: 048
     Dates: start: 20200102
  7. MORPHINE [Concomitant]
     Active Substance: MORPHINE
     Indication: PAIN
     Dosage: 20 MG (24 HR BD)
     Route: 048
     Dates: start: 20191105

REACTIONS (2)
  - Fatigue [Unknown]
  - Pyrexia [Unknown]

NARRATIVE: CASE EVENT DATE: 20200118
